FAERS Safety Report 13851301 (Version 1)
Quarter: 2017Q3

REPORT INFORMATION
  Report Type: Spontaneous
  Country: US (occurrence: US)
  Receive Date: 20170809
  Receipt Date: 20170809
  Transmission Date: 20171127
  Serious: No
  Sender: FDA-Public Use
  Company Number: US-TEVA-794879ACC

PATIENT
  Age: 45 Year
  Sex: Female

DRUGS (1)
  1. CINQAIR [Suspect]
     Active Substance: RESLIZUMAB
     Dates: start: 20170726

REACTIONS (1)
  - Pain [Unknown]

NARRATIVE: CASE EVENT DATE: 201707
